FAERS Safety Report 23314928 (Version 1)
Quarter: 2023Q4

REPORT INFORMATION
  Report Type: Spontaneous
  Country: PL (occurrence: PL)
  Receive Date: 20231219
  Receipt Date: 20231219
  Transmission Date: 20240110
  Serious: Yes (Other)
  Sender: FDA-Public Use
  Company Number: None

PATIENT
  Age: 69 Year
  Weight: 62 kg

DRUGS (3)
  1. FLUOROURACIL [Suspect]
     Active Substance: FLUOROURACIL
     Dosage: ADMINISTERED VIA INFUSION PUMP, DURATION: 3 DAYS
     Route: 042
     Dates: start: 20220920, end: 20220922
  2. FLUOROURACIL [Suspect]
     Active Substance: FLUOROURACIL
     Dosage: ADMINISTERED VIA BOLUS, DURATION: 2 DAYS
     Route: 042
     Dates: start: 20220920, end: 20220921
  3. OXALIPLATIN [Suspect]
     Active Substance: OXALIPLATIN
     Dosage: ADMINISTERED VIA DRIP INFUSION, DURATION: 1 DAY
     Route: 042
     Dates: start: 20220920, end: 20220920

REACTIONS (1)
  - Neutropenia [Recovered/Resolved with Sequelae]

NARRATIVE: CASE EVENT DATE: 20221004
